FAERS Safety Report 4471112-1 (Version None)
Quarter: 2004Q4

REPORT INFORMATION
  Report Type: 
  Country: None (occurrence: None)
  Receive Date: 20041005
  Receipt Date: 20040922
  Transmission Date: 20050328
  Serious: Yes (Hospitalization)
  Sender: FDA-Public Use
  Company Number: WAES 0409USA02246

PATIENT
  Age: 69 Year
  Sex: Female

DRUGS (5)
  1. COZAAR [Suspect]
     Indication: HYPERTENSION
     Dosage: 50 MG/DAILY
     Route: 048
     Dates: start: 20001018, end: 20030808
  2. BAYASPIRIN [Concomitant]
  3. DEPAS [Concomitant]
  4. FLUITRAN [Concomitant]
  5. MUCOSTA [Concomitant]

REACTIONS (1)
  - BLOOD PRESSURE INCREASED [None]
